FAERS Safety Report 5168839-5 (Version None)
Quarter: 2006Q4

REPORT INFORMATION
  Report Type: 
  Country: None (occurrence: None)
  Receive Date: 20061211
  Receipt Date: 20061205
  Transmission Date: 20070319
  Serious: Yes (Other)
  Sender: FDA-Public Use
  Company Number: CA-BRISTOL-MYERS SQUIBB COMPANY-13602438

PATIENT
  Age: 43 Year
  Sex: Male

DRUGS (4)
  1. AVAPRO [Suspect]
     Indication: HYPERTENSION
     Route: 048
     Dates: start: 20060930
  2. AMLODIPINE [Concomitant]
  3. FLUDROCORTISONE [Concomitant]
  4. POTASSIUM ACETATE [Concomitant]

REACTIONS (2)
  - GLOSSODYNIA [None]
  - TONGUE DISORDER [None]
